FAERS Safety Report 25508853 (Version 2)
Quarter: 2025Q3

REPORT INFORMATION
  Report Type: Spontaneous
  Country: US (occurrence: US)
  Receive Date: 20250703
  Receipt Date: 20250730
  Transmission Date: 20251021
  Serious: No
  Sender: IPSEN BIOPHARMACEUTICALS, INC.
  Company Number: US-IPSEN Group, Research and Development-2025-14853

PATIENT
  Age: 41 Year
  Sex: Female
  Weight: 95 kg

DRUGS (2)
  1. SOMATULINE DEPOT [Suspect]
     Active Substance: LANREOTIDE ACETATE
     Indication: Hyperparathyroidism
     Dosage: STRENGTH 90MG/3ML, AT A DOSE OF 90 MG EVERY 4 WEEKS VIA DEEP SUBCUTANEOUS ROUTE
     Dates: start: 201611
  2. SOMATULINE DEPOT [Suspect]
     Active Substance: LANREOTIDE ACETATE
     Indication: Acromegaly
     Dates: start: 20160915

REACTIONS (2)
  - Injection site pain [Not Recovered/Not Resolved]
  - Fatigue [Unknown]

NARRATIVE: CASE EVENT DATE: 20160101
